FAERS Safety Report 4293386-2 (Version None)
Quarter: 2004Q1

REPORT INFORMATION
  Report Type: 
  Country: None (occurrence: None)
  Receive Date: 20040126
  Receipt Date: 20031112
  Transmission Date: 20041129
  Serious: No
  Sender: FDA-Public Use
  Company Number: USA031151672

PATIENT
  Age: 62 Year
  Sex: Female

DRUGS (10)
  1. FORTEO [Suspect]
     Dates: start: 20031029
  2. EPOGEN [Concomitant]
  3. SYNTHROID [Concomitant]
  4. PROCRIT (ERYTHROPOIETIN) [Concomitant]
  5. DARVOCET-N 100 [Concomitant]
  6. PREDNISONE [Concomitant]
  7. COVERA-HS [Concomitant]
  8. UNIVASC [Concomitant]
  9. CARDURA [Concomitant]
  10. ALDACTONE [Concomitant]

REACTIONS (6)
  - BLOOD ALKALINE PHOSPHATASE DECREASED [None]
  - BLOOD CREATININE INCREASED [None]
  - BLOOD THYROID STIMULATING HORMONE DECREASED [None]
  - BLOOD UREA INCREASED [None]
  - FATIGUE [None]
  - WEIGHT INCREASED [None]
